FAERS Safety Report 21497396 (Version 2)
Quarter: 2022Q4

REPORT INFORMATION
  Report Type: Report from Study
  Country: US (occurrence: US)
  Receive Date: 20221023
  Receipt Date: 20221026
  Transmission Date: 20230113
  Serious: Yes (Other)
  Sender: FDA-Public Use
  Company Number: US-BoehringerIngelheim-2022-BI-174420

PATIENT
  Age: 78 Year
  Sex: Female

DRUGS (4)
  1. OFEV [Suspect]
     Active Substance: NINTEDANIB
     Indication: Interstitial lung disease
     Route: 048
     Dates: start: 20220526, end: 20220716
  2. OFEV [Suspect]
     Active Substance: NINTEDANIB
     Route: 048
  3. OFEV [Suspect]
     Active Substance: NINTEDANIB
     Route: 048
     Dates: start: 20220722
  4. OFEV [Suspect]
     Active Substance: NINTEDANIB
     Route: 048

REACTIONS (17)
  - Pulmonary fibrosis [Not Recovered/Not Resolved]
  - Diarrhoea [Recovering/Resolving]
  - Abdominal discomfort [Unknown]
  - Abdominal discomfort [Not Recovered/Not Resolved]
  - Abdominal pain lower [Not Recovered/Not Resolved]
  - Headache [Not Recovered/Not Resolved]
  - Arthralgia [Not Recovered/Not Resolved]
  - Muscle spasms [Not Recovered/Not Resolved]
  - Paraesthesia [Not Recovered/Not Resolved]
  - Sciatica [Not Recovered/Not Resolved]
  - Abdominal pain upper [Not Recovered/Not Resolved]
  - Dizziness [Unknown]
  - Abdominal discomfort [Not Recovered/Not Resolved]
  - Frequent bowel movements [Recovering/Resolving]
  - Depression [Recovering/Resolving]
  - Dyspnoea [Not Recovered/Not Resolved]
  - Oxygen saturation decreased [Not Recovered/Not Resolved]

NARRATIVE: CASE EVENT DATE: 20220711
